FAERS Safety Report 10030584 (Version 2)
Quarter: 2014Q1

REPORT INFORMATION
  Report Type: Spontaneous
  Country: US (occurrence: US)
  Receive Date: 20140323
  Receipt Date: 20140323
  Transmission Date: 20141002
  Serious: No
  Sender: FDA-Public Use
  Company Number: US-ALLERGAN-1317922US

PATIENT
  Sex: Female

DRUGS (3)
  1. LATISSE 0.03% [Suspect]
     Indication: GROWTH OF EYELASHES
     Dosage: 1 GTT, ONCE AT NIGHT BUT DID NOT USE EVERY NIGHT
     Dates: end: 201310
  2. LATISSE 0.03% [Suspect]
     Dosage: 2 GTT, ONCE AT NIGHT BUT DID NOT USE EVERY NIGHT
     Dates: start: 201309
  3. BCP NOS (PRESUMED BIRTH CONTROL PILL) [Concomitant]
     Indication: MENSTRUAL DISORDER
     Dosage: UNK
     Dates: end: 201309

REACTIONS (5)
  - Incorrect dose administered [Unknown]
  - Inappropriate schedule of drug administration [Unknown]
  - Wrong technique in drug usage process [Unknown]
  - Hair growth abnormal [Not Recovered/Not Resolved]
  - Skin hyperpigmentation [Recovering/Resolving]
